FAERS Safety Report 25310603 (Version 1)
Quarter: 2025Q2

REPORT INFORMATION
  Report Type: Spontaneous
  Country: US (occurrence: US)
  Receive Date: 20250514
  Receipt Date: 20250514
  Transmission Date: 20250717
  Serious: Yes (Hospitalization, Other)
  Sender: NOVO NORDISK
  Company Number: US-NOVOPROD-1386600

PATIENT
  Age: 31 Year
  Sex: Male
  Weight: 114.74 kg

DRUGS (9)
  1. WEGOVY [Suspect]
     Active Substance: SEMAGLUTIDE
     Indication: Obesity
     Dosage: 0.25 MG, QW
     Dates: start: 20230327, end: 20230423
  2. WEGOVY [Suspect]
     Active Substance: SEMAGLUTIDE
     Indication: Sleep apnoea syndrome
  3. WEGOVY [Suspect]
     Active Substance: SEMAGLUTIDE
     Indication: Sleep apnoea syndrome
  4. WEGOVY [Suspect]
     Active Substance: SEMAGLUTIDE
     Indication: Obesity
     Dosage: 0.50 MG, QW
     Dates: start: 20230424, end: 20230521
  5. WEGOVY [Suspect]
     Active Substance: SEMAGLUTIDE
     Indication: Obesity
     Dosage: 1 MG, QW
     Dates: start: 20230521, end: 20230618
  6. WEGOVY [Suspect]
     Active Substance: SEMAGLUTIDE
     Indication: Sleep apnoea syndrome
  7. WEGOVY [Suspect]
     Active Substance: SEMAGLUTIDE
     Indication: Obesity
     Dosage: 1.7 MG, QW
     Dates: start: 20230619, end: 20230713
  8. WEGOVY [Suspect]
     Active Substance: SEMAGLUTIDE
     Indication: Sleep apnoea syndrome
  9. ADDERALL [Concomitant]
     Active Substance: AMPHETAMINE ASPARTATE\AMPHETAMINE SULFATE\DEXTROAMPHETAMINE SACCHARATE\DEXTROAMPHETAMINE SULFATE
     Indication: Attention deficit hyperactivity disorder
     Dates: start: 20220101

REACTIONS (9)
  - Ischaemia [Recovered/Resolved]
  - Intestinal perforation [Recovered/Resolved]
  - Vomiting [Recovered/Resolved]
  - Dyspepsia [Not Recovered/Not Resolved]
  - Nausea [Not Recovered/Not Resolved]
  - Abdominal pain upper [Not Recovered/Not Resolved]
  - Injury [Unknown]
  - Condition aggravated [Unknown]
  - Anxiety [Unknown]

NARRATIVE: CASE EVENT DATE: 20230501
